FAERS Safety Report 7125171-8 (Version None)
Quarter: 2010Q4

REPORT INFORMATION
  Report Type: 
  Country: None (occurrence: None)
  Receive Date: 20101129
  Receipt Date: 20101116
  Transmission Date: 20110411
  Serious: Yes (Hospitalization)
  Sender: FDA-Public Use
  Company Number: PHHY2010FR78383

PATIENT
  Age: 74 Year
  Sex: Female

DRUGS (7)
  1. EXELON [Suspect]
     Indication: DEMENTIA ALZHEIMER'S TYPE
     Dosage: 9.5 MG, QD
     Route: 062
     Dates: start: 20080901, end: 20100809
  2. EQUANIL [Concomitant]
     Indication: AGITATION
     Dosage: 500 MG DAILY
  3. PROTELOS [Concomitant]
     Indication: OSTEOPOROSIS
     Dosage: 1 DF, QD
  4. PROTELOS [Concomitant]
     Indication: BACK PAIN
  5. MOPRAL [Concomitant]
  6. ESCITALOPRAM [Concomitant]
     Dosage: 10 MG, QD
  7. IXPRIM [Concomitant]
     Dosage: 2 DF DAILY

REACTIONS (5)
  - ABNORMAL BEHAVIOUR [None]
  - DYSTONIA [None]
  - MENTAL DISORDER [None]
  - PLEUROTHOTONUS [None]
  - POSTURE ABNORMAL [None]
